FAERS Safety Report 18959480 (Version 6)
Quarter: 2023Q1

REPORT INFORMATION
  Report Type: Report from Study
  Country: US (occurrence: US)
  Receive Date: 20210302
  Receipt Date: 20230207
  Transmission Date: 20230418
  Serious: Yes (Other)
  Sender: FDA-Public Use
  Company Number: US-ASTELLAS-2018US048861

PATIENT
  Age: 81 Year
  Sex: Male

DRUGS (15)
  1. ENZALUTAMIDE [Suspect]
     Active Substance: ENZALUTAMIDE
     Indication: Prostate cancer
     Route: 048
     Dates: start: 20180322, end: 20210220
  2. ENZALUTAMIDE [Suspect]
     Active Substance: ENZALUTAMIDE
     Route: 048
     Dates: start: 20210225
  3. ENZALUTAMIDE [Suspect]
     Active Substance: ENZALUTAMIDE
     Indication: Prostate cancer
     Route: 048
     Dates: start: 20220223
  4. HYTRIN [Concomitant]
     Active Substance: TERAZOSIN HYDROCHLORIDE
     Indication: Hypertension
     Dosage: 2 MG, ONCE DAILY AFTER DINNER
     Route: 065
  5. GLUCOPHAGE [Concomitant]
     Active Substance: METFORMIN HYDROCHLORIDE
     Indication: Type 2 diabetes mellitus
     Dosage: 500 MG, TWICE DAILY AFTER BREAKFAST AND DINNER
     Route: 065
  6. PRILOSEC [Concomitant]
     Active Substance: OMEPRAZOLE MAGNESIUM
     Indication: Gastrooesophageal reflux disease
     Dosage: 40 MG, ONCE DAILY BEFORE BREAKFAST
     Route: 065
  7. Citracal + D3 [Concomitant]
     Indication: Product used for unknown indication
     Dosage: 2 DF, ONCE DAILY AFTER BREAKFAST
     Route: 065
  8. COZAAR [Concomitant]
     Active Substance: LOSARTAN POTASSIUM
     Indication: Hypertension
     Dosage: 50 MG, ONCE DAILY AFTER BREAKFAST
     Route: 065
  9. ZANTAC [Concomitant]
     Active Substance: RANITIDINE HYDROCHLORIDE
     Indication: Gastrooesophageal reflux disease
     Dosage: 150 MG, ONCE DAILY BEFORE DINNER
     Route: 065
  10. CARVEDILOL [Concomitant]
     Active Substance: CARVEDILOL
     Indication: Cardiac disorder
     Dosage: 3.125 MG, TWICE DAILY AFTER BREAKFAST AND DINNER
     Route: 065
  11. PLAVIX [Concomitant]
     Active Substance: CLOPIDOGREL BISULFATE
     Indication: Anticoagulant therapy
     Route: 065
  12. ZETIA [Concomitant]
     Active Substance: EZETIMIBE
     Indication: Hyperlipidaemia
     Dosage: 10 MG, ONCE DAILY AFTER DINNER
     Route: 065
  13. CRESTOR [Concomitant]
     Active Substance: ROSUVASTATIN CALCIUM
     Indication: Anticoagulant therapy
     Dosage: 40 MG, ONCE DAILY AFTER BREAKFAST
     Route: 065
  14. ASPIRIN [Concomitant]
     Active Substance: ASPIRIN
     Indication: Cardiac disorder
     Route: 065
  15. LUPRON DEPOT [Concomitant]
     Active Substance: LEUPROLIDE ACETATE
     Indication: Product used for unknown indication
     Dosage: 11.25 MG, 3 MONTHS
     Route: 065

REACTIONS (22)
  - Deafness unilateral [Unknown]
  - Myocardial infarction [Recovering/Resolving]
  - Syncope [Recovered/Resolved]
  - Dysgeusia [Recovering/Resolving]
  - Hypoaesthesia [Unknown]
  - Muscle spasms [Unknown]
  - Pollakiuria [Unknown]
  - Sleep disorder [Recovering/Resolving]
  - Hypoaesthesia [Not Recovered/Not Resolved]
  - Ageusia [Recovering/Resolving]
  - Dysphagia [Not Recovered/Not Resolved]
  - Food intolerance [Unknown]
  - Weight decreased [Recovering/Resolving]
  - Oesophageal spasm [Unknown]
  - Decreased appetite [Unknown]
  - Depressed mood [Unknown]
  - Discouragement [Unknown]
  - Fatigue [Not Recovered/Not Resolved]
  - Product availability issue [Unknown]
  - Product supply issue [Unknown]
  - Product distribution issue [Unknown]
  - Product availability issue [Unknown]

NARRATIVE: CASE EVENT DATE: 20180930
